FAERS Safety Report 8600018-9 (Version None)
Quarter: 2012Q3

REPORT INFORMATION
  Report Type: 
  Country: None (occurrence: None)
  Receive Date: 20120816
  Receipt Date: 20120807
  Transmission Date: 20120928
  Serious: Yes (Other)
  Sender: FDA-Public Use
  Company Number: CHPA2012US017766

PATIENT
  Age: 66 Year
  Sex: Female

DRUGS (1)
  1. PHENYLEPHRINE HCL [Suspect]
     Indication: SINUSITIS
     Dosage: A COUPLE OF SPRAYS, EVERY DAY
     Route: 045
     Dates: start: 19680101, end: 20120501

REACTIONS (6)
  - UPPER LIMB FRACTURE [None]
  - THERAPEUTIC RESPONSE UNEXPECTED [None]
  - ROAD TRAFFIC ACCIDENT [None]
  - INCORRECT DRUG ADMINISTRATION DURATION [None]
  - FACIAL BONES FRACTURE [None]
  - OFF LABEL USE [None]
